FAERS Safety Report 8973239 (Version 6)
Quarter: 2013Q4

REPORT INFORMATION
  Report Type: Spontaneous
  Country: US (occurrence: US)
  Receive Date: 20121218
  Receipt Date: 20131029
  Transmission Date: 20140711
  Serious: Yes (Hospitalization, Other)
  Sender: FDA-Public Use
  Company Number: US-PFIZER INC-2012318505

PATIENT
  Age: 71 Year
  Sex: Female
  Weight: 81.18 kg

DRUGS (5)
  1. LYRICA [Suspect]
     Indication: FIBROMYALGIA
     Dosage: 50 MG, 3X/DAY
     Dates: start: 2012, end: 201212
  2. LYRICA [Suspect]
     Indication: PAIN
     Dosage: 100 MG, 3X/DAY
  3. LYRICA [Suspect]
     Dosage: 150 MG, 3X/DAY
  4. ATENOLOL [Concomitant]
     Indication: HYPERTENSION
     Dosage: 100 MG DAILY
  5. LEVOTHYROXINE [Concomitant]
     Indication: THYROID DISORDER
     Dosage: 125 UG, 1X/DAY

REACTIONS (10)
  - Myocardial infarction [Unknown]
  - Heart rate increased [Unknown]
  - Activities of daily living impaired [Unknown]
  - Gait disturbance [Unknown]
  - Weight increased [Unknown]
  - Pain [Unknown]
  - Hyperhidrosis [Unknown]
  - Nausea [Unknown]
  - Feeling abnormal [Unknown]
  - Malaise [Unknown]
